FAERS Safety Report 10251219 (Version 1)
Quarter: 2014Q2

REPORT INFORMATION
  Report Type: Report from Study
  Country: US (occurrence: US)
  Receive Date: 20140620
  Receipt Date: 20140620
  Transmission Date: 20141212
  Serious: Yes (Hospitalization)
  Sender: FDA-Public Use
  Company Number: US-ASTRAZENECA-2014SE44448

PATIENT
  Age: 38 Year
  Sex: Male
  Weight: 136.1 kg

DRUGS (10)
  1. AMLODIPINE [Concomitant]
     Indication: BLOOD PRESSURE
     Route: 048
     Dates: start: 2009
  2. HYDROCHLOROTHIAZIDE [Concomitant]
     Indication: BLOOD PRESSURE
     Route: 048
     Dates: start: 2009
  3. KLOR-CON [Concomitant]
     Indication: BLOOD POTASSIUM
     Route: 048
     Dates: start: 2013
  4. TWO MEDICATIONS [Concomitant]
  5. LISINOPRIL [Suspect]
     Indication: HYPERTENSION
     Route: 048
     Dates: start: 2009
  6. NEXIUM [Suspect]
     Indication: GASTROOESOPHAGEAL REFLUX DISEASE
     Route: 048
     Dates: start: 2008
  7. METOPROLOL ER [Suspect]
     Route: 048
     Dates: start: 2009
  8. NOVOLOG FLEXPEN [Concomitant]
     Indication: DIABETES MELLITUS
     Route: 058
     Dates: start: 2011
  9. LANTUS SOLO STAR FLEXPEN [Concomitant]
     Indication: DIABETES MELLITUS
     Route: 058
     Dates: start: 2011
  10. METFORMIN [Concomitant]
     Indication: DIABETES MELLITUS
     Route: 048
     Dates: start: 2011

REACTIONS (8)
  - Loss of consciousness [Unknown]
  - Blood glucose abnormal [Unknown]
  - Chest pain [Unknown]
  - Hypertension [Unknown]
  - Accident at work [Unknown]
  - Blood potassium decreased [Unknown]
  - Back injury [Unknown]
  - Drug ineffective [Unknown]
